FAERS Safety Report 7782505-9 (Version None)
Quarter: 2011Q3

REPORT INFORMATION
  Report Type: 
  Country: None (occurrence: None)
  Receive Date: 20110927
  Receipt Date: 20110927
  Transmission Date: 20111222
  Serious: Yes (Hospitalization)
  Sender: FDA-Public Use
  Company Number: None

PATIENT
  Sex: Female
  Weight: 95 kg

DRUGS (1)
  1. SUNITINIB MALATE [Suspect]
     Indication: RENAL CANCER METASTATIC
     Dosage: 50MG QDX28 DAYS, Q 6 WKS
     Dates: start: 20110602, end: 20110810

REACTIONS (2)
  - TUMOUR COMPRESSION [None]
  - ABDOMINAL PAIN [None]
